FAERS Safety Report 11573040 (Version 3)
Quarter: 2015Q4

REPORT INFORMATION
  Report Type: Spontaneous
  Country: US (occurrence: US)
  Receive Date: 20150916
  Receipt Date: 20151104
  Transmission Date: 20160304
  Serious: No
  Sender: FDA-Public Use
  Company Number: US-ELI_LILLY_AND_COMPANY-US200910005914

PATIENT
  Age: 80 Year
  Sex: Female

DRUGS (2)
  1. FORTEO [Suspect]
     Active Substance: TERIPARATIDE
     Dosage: 20 UG, DAILY (1/D)
  2. FORTEO [Suspect]
     Active Substance: TERIPARATIDE
     Indication: OSTEOPOROSIS
     Dosage: 20 UG, DAILY (1/D)
     Dates: start: 20090519

REACTIONS (13)
  - Somnolence [Unknown]
  - Tinnitus [Unknown]
  - Muscle strain [Unknown]
  - Nervousness [Recovered/Resolved]
  - Neuropathy peripheral [Unknown]
  - Drug hypersensitivity [Unknown]
  - Hypoacusis [Unknown]
  - Arthralgia [Unknown]
  - Joint stiffness [Unknown]
  - Fall [Unknown]
  - Myalgia [Unknown]
  - Arthritis [Unknown]
  - Dizziness [Recovered/Resolved]

NARRATIVE: CASE EVENT DATE: 201009
